FAERS Safety Report 5663323-4 (Version None)
Quarter: 2008Q1

REPORT INFORMATION
  Report Type: 
  Country: None (occurrence: None)
  Receive Date: 20080307
  Receipt Date: 20080222
  Transmission Date: 20080703
  Serious: Yes (Hospitalization)
  Sender: FDA-Public Use
  Company Number: LTI2008A00056

PATIENT
  Age: 76 Year
  Sex: Male

DRUGS (5)
  1. ACTOS [Suspect]
     Indication: TYPE 2 DIABETES MELLITUS
     Dosage: 30 MG (15 MG, 2 IN 1 D)  ORAL;  45 MG (2 IN 1 D) ORAL
     Route: 048
     Dates: start: 20060101, end: 20070101
  2. ACTOS [Suspect]
     Indication: TYPE 2 DIABETES MELLITUS
     Dosage: 30 MG (15 MG, 2 IN 1 D)  ORAL;  45 MG (2 IN 1 D) ORAL
     Route: 048
     Dates: start: 20070101, end: 20071001
  3. COMPETACT(FIOGLITAZONE HYDROCHLORIDE, METFORMIN HYDROCHLORIDE) [Suspect]
     Indication: TYPE 2 DIABETES MELLITUS
     Dosage: ORAL
     Route: 048
     Dates: start: 20071001, end: 20071201
  4. NOVONORM (REPAGLINIDE) [Concomitant]
  5. PREVISCAN (FLUINDIONE) [Concomitant]

REACTIONS (5)
  - CARDIAC FAILURE [None]
  - NON-HODGKIN'S LYMPHOMA [None]
  - OEDEMA PERIPHERAL [None]
  - RESPIRATORY TRACT INFECTION [None]
  - WEIGHT INCREASED [None]
